FAERS Safety Report 6335654-6 (Version None)
Quarter: 2009Q3

REPORT INFORMATION
  Report Type: 
  Country: None (occurrence: None)
  Receive Date: 20090826
  Receipt Date: 20090811
  Transmission Date: 20100115
  Serious: Yes (Other)
  Sender: FDA-Public Use
  Company Number: DE-1170590

PATIENT

DRUGS (1)
  1. FLUORESCEIN SODIUM 10 % INJECTION EYE DROPS, SOLUTION [Suspect]
     Dosage: INTRAVENOUS BOLUS
     Route: 040

REACTIONS (4)
  - BLOOD PRESSURE DECREASED [None]
  - DIZZINESS [None]
  - FLUSHING [None]
  - LOSS OF CONSCIOUSNESS [None]
